FAERS Safety Report 24809396 (Version 1)
Quarter: 2025Q1

REPORT INFORMATION
  Report Type: Spontaneous
  Country: US (occurrence: US)
  Receive Date: 20250106
  Receipt Date: 20250106
  Transmission Date: 20250409
  Serious: No
  Sender: AMGEN
  Company Number: US-AMGEN-USASP2024255153

PATIENT

DRUGS (3)
  1. ADALIMUMAB [Suspect]
     Active Substance: ADALIMUMAB
     Indication: Inflammatory bowel disease
     Route: 065
  2. ETROLIZUMAB [Concomitant]
     Active Substance: ETROLIZUMAB
     Indication: Colitis ulcerative
  3. VIXARELIMAB [Concomitant]
     Active Substance: VIXARELIMAB

REACTIONS (1)
  - Therapeutic product effect incomplete [Unknown]
